FAERS Safety Report 15621751 (Version 1)
Quarter: 2018Q4

REPORT INFORMATION
  Report Type: Report from Study
  Country: US (occurrence: US)
  Receive Date: 20181115
  Receipt Date: 20181115
  Transmission Date: 20190205
  Serious: Yes (Other)
  Sender: FDA-Public Use
  Company Number: US-PFIZER INC-2018464036

PATIENT

DRUGS (1)
  1. SILDENAFIL CITRATE. [Suspect]
     Active Substance: SILDENAFIL CITRATE
     Indication: PULMONARY HYPERTENSION
     Dosage: 1 MG/KG, 3X/DAY (MAINTENANCE DOSING RANGE, ENTERALLY)

REACTIONS (2)
  - Oxygen saturation decreased [Unknown]
  - Bronchospasm [Unknown]
